FAERS Safety Report 5893469-7 (Version None)
Quarter: 2008Q3

REPORT INFORMATION
  Report Type: 
  Country: None (occurrence: None)
  Receive Date: 20080922
  Receipt Date: 20080922
  Transmission Date: 20090109
  Serious: Yes (Other)
  Sender: FDA-Public Use
  Company Number: None

PATIENT
  Age: 72 Year
  Sex: Male
  Weight: 95 kg

DRUGS (1)
  1. SERTRALINE [Suspect]
     Indication: DEPRESSION
     Dosage: 50MG 150MG/DAY PO
     Route: 048
     Dates: start: 20070401, end: 20080905

REACTIONS (3)
  - CONDITION AGGRAVATED [None]
  - MICTURITION URGENCY [None]
  - URINARY INCONTINENCE [None]
